FAERS Safety Report 14425182 (Version 1)
Quarter: 2018Q1

REPORT INFORMATION
  Report Type: Spontaneous
  Country: FR (occurrence: FR)
  Receive Date: 20180123
  Receipt Date: 20180123
  Transmission Date: 20180509
  Serious: Yes (Life-Threatening, Hospitalization)
  Sender: FDA-Public Use
  Company Number: FR-JNJFOC-20180126310

PATIENT
  Sex: Female
  Weight: 2.33 kg

DRUGS (1)
  1. TRAMADOL HYDROCHLORIDE. [Suspect]
     Active Substance: TRAMADOL HYDROCHLORIDE
     Indication: PAIN
     Route: 064

REACTIONS (3)
  - Foetal exposure during pregnancy [Unknown]
  - Infantile apnoea [Not Recovered/Not Resolved]
  - Bradypnoea [Not Recovered/Not Resolved]

NARRATIVE: CASE EVENT DATE: 20171129
